FAERS Safety Report 19577107 (Version 2)
Quarter: 2021Q4

REPORT INFORMATION
  Report Type: Spontaneous
  Country: US (occurrence: US)
  Receive Date: 20210719
  Receipt Date: 20211230
  Transmission Date: 20220303
  Serious: No
  Sender: FDA-Public Use
  Company Number: US-PFIZER INC-2021873489

PATIENT
  Age: 64 Year
  Sex: Female

DRUGS (1)
  1. XELJANZ XR [Suspect]
     Active Substance: TOFACITINIB CITRATE
     Indication: Rheumatoid arthritis
     Dosage: 11 MG, DAILY
     Route: 048
     Dates: start: 202105, end: 20210826

REACTIONS (9)
  - Condition aggravated [Unknown]
  - Pain in extremity [Unknown]
  - Inflammation [Unknown]
  - Cognitive disorder [Recovered/Resolved]
  - Amnesia [Recovered/Resolved]
  - Balance disorder [Recovered/Resolved]
  - SARS-CoV-2 test positive [Unknown]
  - Therapeutic product effect incomplete [Unknown]
  - Product dose omission issue [Unknown]

NARRATIVE: CASE EVENT DATE: 20210101
